FAERS Safety Report 7632181-0 (Version None)
Quarter: 2011Q3

REPORT INFORMATION
  Report Type: 
  Country: None (occurrence: None)
  Receive Date: 20110725
  Receipt Date: 20110527
  Transmission Date: 20111222
  Serious: No
  Sender: FDA-Public Use
  Company Number: US-BRISTOL-MYERS SQUIBB COMPANY-15785355

PATIENT
  Age: 74 Year
  Sex: Female

DRUGS (19)
  1. CYMBALTA [Concomitant]
  2. NOVOLOG [Concomitant]
  3. SPIRONOLACTONE [Concomitant]
  4. DIPHENOXYLATE HCL + ATROPINE SULFATE [Concomitant]
  5. PLAVIX [Concomitant]
  6. CEPHALEXIN [Concomitant]
  7. NITROGLYCERIN [Concomitant]
  8. METOPROLOL TARTRATE [Concomitant]
  9. HYDREA [Concomitant]
  10. LOTREL [Concomitant]
  11. VITAMIN K TAB [Concomitant]
     Dosage: INJECTIONS
     Dates: start: 20110101
  12. PROVENTIL [Concomitant]
  13. HYDROCHLOROTHIAZIDE [Concomitant]
  14. VITAMIN B-12 [Concomitant]
  15. COUMADIN [Suspect]
     Indication: POLYCYTHAEMIA VERA
     Dosage: 1DF: 2.5 TO 5MG
     Dates: start: 19990101
  16. MORPHINE [Concomitant]
  17. DEXAMETHASONE [Concomitant]
     Dosage: LINODERM PATCHES
  18. CLONAZEPAM [Concomitant]
  19. LANTUS [Concomitant]

REACTIONS (1)
  - INTERNATIONAL NORMALISED RATIO FLUCTUATION [None]
